FAERS Safety Report 15049954 (Version 1)
Quarter: 2018Q2

REPORT INFORMATION
  Report Type: Spontaneous
  Country: US (occurrence: US)
  Receive Date: 20180601
  Receipt Date: 20180601
  Transmission Date: 20180711
  Serious: Yes (Hospitalization, Other)
  Sender: FDA-Public Use
  Company Number: None

PATIENT
  Age: 45 Year
  Sex: Male

DRUGS (4)
  1. PREDNISONE. [Concomitant]
     Active Substance: PREDNISONE
  2. ENBREL [Suspect]
     Active Substance: ETANERCEPT
     Indication: SPONDYLOARTHROPATHY
     Route: 058
     Dates: start: 20171024
  3. DICLOFENAC [Concomitant]
     Active Substance: DICLOFENAC
  4. BETA GLUCAGON [Concomitant]

REACTIONS (3)
  - Blood disorder [None]
  - Surgery [None]
  - Dehydration [None]

NARRATIVE: CASE EVENT DATE: 20180213
